FAERS Safety Report 21524166 (Version 1)
Quarter: 2022Q4

REPORT INFORMATION
  Report Type: Spontaneous
  Country: IT (occurrence: IT)
  Receive Date: 20221029
  Receipt Date: 20221029
  Transmission Date: 20230113
  Serious: Yes (Hospitalization)
  Sender: FDA-Public Use
  Company Number: None

PATIENT
  Age: 55 Year
  Sex: Female

DRUGS (1)
  1. OLANZAPINE [Suspect]
     Active Substance: OLANZAPINE
     Indication: Drug abuse
     Dosage: UNK
     Route: 048
     Dates: start: 20220308, end: 20220308

REACTIONS (3)
  - Suicide attempt [Unknown]
  - Coma [Unknown]
  - Drug abuse [Unknown]

NARRATIVE: CASE EVENT DATE: 20220308
